FAERS Safety Report 6826228-9 (Version None)
Quarter: 2010Q3

REPORT INFORMATION
  Report Type: 
  Country: None (occurrence: None)
  Receive Date: 20100709
  Receipt Date: 20100624
  Transmission Date: 20110219
  Serious: Yes (Other)
  Sender: FDA-Public Use
  Company Number: PHHY2010AU41970

PATIENT
  Sex: Male

DRUGS (2)
  1. NEORAL [Suspect]
  2. SANDIMMUNE [Concomitant]
     Dosage: 25 MG, TID

REACTIONS (1)
  - DRUG HYPERSENSITIVITY [None]
